FAERS Safety Report 25531118 (Version 1)
Quarter: 2025Q3

REPORT INFORMATION
  Report Type: Spontaneous
  Country: JP (occurrence: JP)
  Receive Date: 20250708
  Receipt Date: 20250708
  Transmission Date: 20251020
  Serious: Yes (Other)
  Sender: SANDOZ
  Company Number: JP-aspen-SDZ2023JP016440AA

PATIENT
  Age: 70 Year
  Sex: Female

DRUGS (1)
  1. FLUMAZENIL [Suspect]
     Active Substance: FLUMAZENIL
     Indication: Intentional overdose
     Route: 065

REACTIONS (4)
  - Delirium [Unknown]
  - Depressed level of consciousness [Unknown]
  - Stupor [Unknown]
  - Miosis [Unknown]
